FAERS Safety Report 8590711-9 (Version None)
Quarter: 2012Q3

REPORT INFORMATION
  Report Type: 
  Country: None (occurrence: None)
  Receive Date: 20120813
  Receipt Date: 20120807
  Transmission Date: 20120928
  Serious: Yes (Other)
  Sender: FDA-Public Use
  Company Number: US-BAYER-2012-073422

PATIENT
  Age: 41 Year
  Sex: Female
  Weight: 81.633 kg

DRUGS (5)
  1. EOVIST [Suspect]
     Indication: NUCLEAR MAGNETIC RESONANCE IMAGING
     Dosage: 10 ML, 2 ML / SEC
     Route: 042
     Dates: start: 20120718
  2. SPIRONOLACTONE [Concomitant]
  3. ACTOS [Concomitant]
  4. FEMRING [Concomitant]
     Indication: CONTRACEPTION
  5. GLIMEPIRIDE [Concomitant]

REACTIONS (3)
  - CHEST DISCOMFORT [None]
  - PRURITUS [None]
  - ERYTHEMA [None]
